FAERS Safety Report 25455810 (Version 1)
Quarter: 2025Q2

REPORT INFORMATION
  Report Type: Report from Study
  Country: US (occurrence: US)
  Receive Date: 20250619
  Receipt Date: 20250619
  Transmission Date: 20250716
  Serious: No
  Sender: ACADIA PHARMACEUTICALS
  Company Number: US-ACADIA PHARMACEUTICALS INC.-ACA-2025-PIM-007178

PATIENT
  Sex: Male

DRUGS (38)
  1. NUPLAZID [Suspect]
     Active Substance: PIMAVANSERIN TARTRATE
     Indication: Parkinson^s disease
     Dosage: 34 MILLIGRAM, QD
     Route: 048
  2. OZEMPIC [Concomitant]
     Active Substance: SEMAGLUTIDE
  3. AMANTADINE [Concomitant]
     Active Substance: AMANTADINE
  4. SENNA S [Concomitant]
     Active Substance: DOCUSATE SODIUM\SENNOSIDES
  5. ACETAMINOPHEN [Concomitant]
     Active Substance: ACETAMINOPHEN
  6. ALOCANE [Concomitant]
     Active Substance: LIDOCAINE HYDROCHLORIDE
  7. GAS-X [Concomitant]
     Active Substance: DIMETHICONE
  8. QUETIAPINE FUMARATE [Concomitant]
     Active Substance: QUETIAPINE FUMARATE
  9. SILDENAFIL [Concomitant]
     Active Substance: SILDENAFIL
  10. PRAVASTATIN [Concomitant]
     Active Substance: PRAVASTATIN
  11. CLOPIDOGREL [Concomitant]
     Active Substance: CLOPIDOGREL BISULFATE
  12. CARBIDOPA\LEVODOPA [Concomitant]
     Active Substance: CARBIDOPA\LEVODOPA
  13. CLEARLAX [Concomitant]
     Active Substance: POLYETHYLENE GLYCOL 3350
  14. TESTOSTERONE CYPIONATE [Concomitant]
     Active Substance: TESTOSTERONE CYPIONATE
  15. CYANOCOBALAMIN [Concomitant]
     Active Substance: CYANOCOBALAMIN
  16. TRIAMCINOLONE ACETONIDE [Concomitant]
     Active Substance: TRIAMCINOLONE ACETONIDE
  17. LOSARTAN [Concomitant]
     Active Substance: LOSARTAN
  18. ENTACAPONE [Concomitant]
     Active Substance: ENTACAPONE
  19. HYDROCODONE [Concomitant]
     Active Substance: HYDROCODONE
  20. MYRBETRIQ [Concomitant]
     Active Substance: MIRABEGRON
  21. FLUTICASONE PROPIONATE [Concomitant]
     Active Substance: FLUTICASONE PROPIONATE
  22. DICLOFENAC [Concomitant]
     Active Substance: DICLOFENAC
  23. MECLIZINE [Concomitant]
     Active Substance: MECLIZINE HYDROCHLORIDE
  24. SPIRONOLACTONE [Concomitant]
     Active Substance: SPIRONOLACTONE
  25. FAMOTIDINE [Concomitant]
     Active Substance: FAMOTIDINE
  26. LEVOTHYROXINE [Concomitant]
     Active Substance: LEVOTHYROXINE
  27. METHOCARBAMOL [Concomitant]
     Active Substance: METHOCARBAMOL
  28. OXYMETAZOLINE HYDROCHLORIDE [Concomitant]
     Active Substance: OXYMETAZOLINE HYDROCHLORIDE
  29. NITROGLYCERIN [Concomitant]
     Active Substance: NITROGLYCERIN
  30. GLIPIZIDE [Concomitant]
     Active Substance: GLIPIZIDE
  31. OMEPRAZOLE [Concomitant]
     Active Substance: OMEPRAZOLE
  32. AZELASTINE [Concomitant]
     Active Substance: AZELASTINE
  33. POTASSIUM CHLORIDE [Concomitant]
     Active Substance: POTASSIUM CHLORIDE
  34. DELSYM [Concomitant]
     Active Substance: DEXTROMETHORPHAN
  35. ROPINIROLE [Concomitant]
     Active Substance: ROPINIROLE
  36. METOPROLOL [Concomitant]
     Active Substance: METOPROLOL
  37. BIFIDOBACTERIUM ANIMALIS LACTIS [Concomitant]
     Active Substance: BIFIDOBACTERIUM ANIMALIS LACTIS
  38. FUROSEMIDE [Concomitant]
     Active Substance: FUROSEMIDE

REACTIONS (2)
  - Swelling [Unknown]
  - Contusion [Unknown]
